FAERS Safety Report 9645417 (Version 1)
Quarter: 2013Q4

REPORT INFORMATION
  Report Type: Spontaneous
  Country: US (occurrence: US)
  Receive Date: 20131025
  Receipt Date: 20131025
  Transmission Date: 20140711
  Serious: Yes (Hospitalization)
  Sender: FDA-Public Use
  Company Number: US-ROXANE LABORATORIES, INC.-2013-RO-01721RO

PATIENT
  Age: 27 Year
  Sex: Male

DRUGS (5)
  1. LITHIUM CARBONATE [Suspect]
     Indication: SCHIZOAFFECTIVE DISORDER
     Dosage: 1350 MG
  2. RISPERDAL [Suspect]
     Indication: SCHIZOAFFECTIVE DISORDER
  3. HYDROXYZINE [Suspect]
     Indication: SCHIZOAFFECTIVE DISORDER
  4. TRAZODONE [Suspect]
     Indication: SCHIZOAFFECTIVE DISORDER
  5. ASENAPINE [Suspect]
     Indication: SCHIZOAFFECTIVE DISORDER

REACTIONS (2)
  - Hyperthyroidism [Recovered/Resolved]
  - Thyroiditis acute [Recovered/Resolved]
